FAERS Safety Report 5900139-5 (Version None)
Quarter: 2008Q3

REPORT INFORMATION
  Report Type: 
  Country: None (occurrence: None)
  Receive Date: 20080926
  Receipt Date: 20080922
  Transmission Date: 20090109
  Serious: Yes (Hospitalization)
  Sender: FDA-Public Use
  Company Number: US-MERCK-0809USA00338

PATIENT
  Age: 74 Year
  Sex: Female

DRUGS (7)
  1. COZAAR [Suspect]
     Indication: HYPERTENSION
     Route: 048
     Dates: start: 20040901
  2. ENDOMYCIN [Suspect]
     Route: 065
  3. DIAZIDE [Concomitant]
     Route: 065
  4. ALLOPURINOL [Concomitant]
     Route: 065
  5. LASIX [Concomitant]
     Route: 065
  6. POTASSIUM (UNSPECIFIED) [Concomitant]
     Route: 065
  7. VITAMINS (UNSPECIFIED) [Concomitant]
     Route: 065

REACTIONS (11)
  - ADVERSE REACTION [None]
  - ATRIAL FIBRILLATION [None]
  - BACK PAIN [None]
  - BUNDLE BRANCH BLOCK LEFT [None]
  - CARDIAC FAILURE CONGESTIVE [None]
  - MUSCLE SPASMS [None]
  - NASAL CONGESTION [None]
  - OEDEMA [None]
  - PAIN IN EXTREMITY [None]
  - URINARY TRACT INFECTION [None]
  - WOUND [None]
